FAERS Safety Report 4327605-0 (Version None)
Quarter: 2004Q1

REPORT INFORMATION
  Report Type: 
  Country: None (occurrence: None)
  Receive Date: 20040330
  Receipt Date: 20040330
  Transmission Date: 20041129
  Serious: Yes (Disabling)
  Sender: FDA-Public Use
  Company Number: None

PATIENT
  Age: 16 Year
  Sex: Male
  Weight: 43 kg

DRUGS (8)
  1. TOBRAMYCIN [Suspect]
     Indication: CYSTIC FIBROSIS
     Dosage: 600 MG Q12H RESPIRATORY
     Route: 055
     Dates: start: 20030717, end: 20030812
  2. TOBRAMYCIN [Suspect]
     Indication: LUNG DISORDER
     Dosage: 600 MG Q12H RESPIRATORY
     Route: 055
     Dates: start: 20030717, end: 20030812
  3. TOBRAMYCIN [Suspect]
     Indication: PSEUDOMONAS INFECTION
     Dosage: 600 MG Q12H RESPIRATORY
     Route: 055
     Dates: start: 20030717, end: 20030812
  4. MYCOPHENOLATE MOFETIL [Concomitant]
  5. SIROLIMUS [Concomitant]
  6. VANCOMYCIN [Concomitant]
  7. AMPHOTERICIN B [Concomitant]
  8. B LIPID COMPLEX [Concomitant]

REACTIONS (5)
  - DEAFNESS [None]
  - DRUG TOXICITY [None]
  - HAEMODIALYSIS [None]
  - INFECTION [None]
  - RESPIRATORY FAILURE [None]
